FAERS Safety Report 7584404-4 (Version None)
Quarter: 2011Q2

REPORT INFORMATION
  Report Type: 
  Country: None (occurrence: None)
  Receive Date: 20110630
  Receipt Date: 20110118
  Transmission Date: 20111010
  Serious: Yes (Other)
  Sender: FDA-Public Use
  Company Number: US-BAYER-201038754NA

PATIENT
  Age: 20 Year
  Sex: Female
  Weight: 121.72 kg

DRUGS (14)
  1. MULTI-VITAMIN [Concomitant]
     Dosage: UNK
     Dates: start: 20040101
  2. ALPHA LIPOIC ACID [Concomitant]
     Dosage: UNK
     Dates: start: 20050101
  3. WELLBUTRIN XL [Concomitant]
     Indication: DEPRESSION
     Dosage: UNK
     Dates: start: 20060901, end: 20070101
  4. ASCORBIC ACID [Concomitant]
     Dosage: UNK
     Dates: start: 20070101
  5. WELLBUTRIN [Concomitant]
  6. ACIDOPHILUS [Concomitant]
     Dosage: UNK
     Dates: start: 20060101
  7. FLAX SEED OIL [Concomitant]
     Dosage: UNK
     Dates: start: 20030101, end: 20090101
  8. YASMIN [Suspect]
     Indication: MENSTRUAL DISORDER
  9. HYDROXYZINE [Concomitant]
     Dosage: UNK
     Dates: start: 20060101
  10. FISH OIL [Concomitant]
     Dosage: UNK
     Dates: start: 20040101
  11. YASMIN [Suspect]
     Indication: PREMENSTRUAL SYNDROME
     Dosage: UNK UNK, QD
     Route: 048
     Dates: start: 20031201, end: 20091201
  12. NSAID'S [Concomitant]
     Dosage: UNK UNK, PRN
     Dates: start: 20010101
  13. RESTASIS [Concomitant]
     Indication: DRY EYE
     Dosage: UNK
     Dates: start: 20040801, end: 20090101
  14. AZITHROMYCIN [Concomitant]
     Dosage: UNK
     Dates: start: 20061201

REACTIONS (3)
  - CHOLECYSTITIS CHRONIC [None]
  - BILIARY DYSKINESIA [None]
  - CHOLECYSTECTOMY [None]
